FAERS Safety Report 16461547 (Version 1)
Quarter: 2019Q2

REPORT INFORMATION
  Report Type: Report from Study
  Country: GB (occurrence: GB)
  Receive Date: 20190621
  Receipt Date: 20190621
  Transmission Date: 20190711
  Serious: Yes (Other)
  Sender: FDA-Public Use
  Company Number: GB-AMGEN-GBRSL2019075550

PATIENT
  Age: 58 Year
  Sex: Male

DRUGS (2)
  1. REPATHA [Suspect]
     Active Substance: EVOLOCUMAB
     Dosage: 140 UNK, Q2WK
     Route: 058
     Dates: start: 20190118, end: 20190524
  2. REPATHA [Suspect]
     Active Substance: EVOLOCUMAB
     Indication: TYPE IIA HYPERLIPIDAEMIA
     Dosage: UNK
     Route: 065

REACTIONS (10)
  - Irritability [Unknown]
  - Psychiatric symptom [Unknown]
  - Fatigue [Unknown]
  - Nausea [Unknown]
  - Dry mouth [Unknown]
  - Disturbance in attention [Unknown]
  - Inflammation [Unknown]
  - Polyuria [Unknown]
  - Dermatitis [Unknown]
  - Rash [Unknown]
